FAERS Safety Report 7587104-X (Version None)
Quarter: 2011Q3

REPORT INFORMATION
  Report Type: 
  Country: None (occurrence: None)
  Receive Date: 20110701
  Receipt Date: 20110630
  Transmission Date: 20111222
  Serious: Yes (Death, Other)
  Sender: FDA-Public Use
  Company Number: PHEH2008US02891

PATIENT
  Sex: Male

DRUGS (30)
  1. ARANESP [Concomitant]
     Dosage: 300 MCG
  2. TYLENOL-500 [Concomitant]
     Dosage: AS NEEDED
  3. MONOCLONAL ANTIBODY 17-1A [Concomitant]
  4. RED BLOOD CELLS [Concomitant]
     Dosage: 2 UNITS
  5. LANOXIN [Concomitant]
     Dosage: UNK
  6. TAXOTERE [Concomitant]
     Dosage: 75 MG IM
  7. LEVAQUIN [Concomitant]
     Dosage: 750 MG, QD
     Route: 048
     Dates: end: 20070920
  8. ZETIA [Concomitant]
     Dosage: UNK
  9. RADIATION THERAPY [Concomitant]
  10. FLOMAX [Concomitant]
     Dosage: UNK
  11. PREDNISONE [Concomitant]
     Dosage: UNK
  12. VANCOMYCIN [Concomitant]
     Dosage: 1250 MG IV OVER 24 HRS FOR 5 WEEKSUNK
     Route: 042
     Dates: start: 20070101
  13. CASODEX [Concomitant]
  14. ASPIRIN [Concomitant]
     Dosage: 1 PER DAY
  15. DECADRON [Concomitant]
     Dosage: UNK
  16. FLAGYL [Concomitant]
     Dosage: UNK
  17. MITOXANTRONE [Concomitant]
     Dosage: UNK
  18. LUPRON [Concomitant]
     Dosage: 22.5 MG IM
  19. TAXOL + CARBOPLATIN [Concomitant]
  20. LIPITOR [Concomitant]
     Dosage: UNK
  21. SENNA [Concomitant]
     Dosage: UNK
  22. QUADRAMET [Concomitant]
     Dosage: UNK
  23. MEGACE [Concomitant]
     Dosage: UNK
  24. PERCOCET [Concomitant]
     Indication: PAIN
     Dosage: 1-2 TABS PRN Q 4-6 HRS
     Route: 048
  25. BIOTENE [Concomitant]
     Dosage: 30 CC SWISH AND SPIT EVERY 4 HOURS
  26. BENACINE [Concomitant]
     Dosage: 125 MCG QD PO
  27. ZOMETA [Suspect]
     Indication: PROSTATE CANCER
     Dosage: 4 MG IV
     Route: 042
     Dates: start: 20030701, end: 20060124
  28. PINDOLOL [Concomitant]
     Dosage: 5 MG, BID
  29. MAXZIDE [Concomitant]
     Dosage: UNK
  30. RED BLOOD CELLS, CONCENTRATED [Concomitant]

REACTIONS (45)
  - ARRHYTHMIA [None]
  - HERPES ZOSTER [None]
  - INJURY [None]
  - PAIN [None]
  - ANHEDONIA [None]
  - GINGIVAL HYPERTROPHY [None]
  - HEPATOMEGALY [None]
  - ANAEMIA [None]
  - LOOSE TOOTH [None]
  - METASTASES TO BONE [None]
  - DENTAL CARIES [None]
  - DISABILITY [None]
  - TOOTH FRACTURE [None]
  - CONSTIPATION [None]
  - SICK SINUS SYNDROME [None]
  - LUNG DISORDER [None]
  - DEATH [None]
  - BONE DISORDER [None]
  - GINGIVAL ERYTHEMA [None]
  - JAW FRACTURE [None]
  - PANCREATIC CYST [None]
  - OSTEONECROSIS OF JAW [None]
  - SWELLING FACE [None]
  - CHOLELITHIASIS [None]
  - HIATUS HERNIA [None]
  - SPINAL COMPRESSION FRACTURE [None]
  - DYSPNOEA [None]
  - CHEST DISCOMFORT [None]
  - GASTROOESOPHAGEAL REFLUX DISEASE [None]
  - PAIN IN JAW [None]
  - INFECTION [None]
  - PURULENT DISCHARGE [None]
  - MESENTERITIS [None]
  - DEPRESSION [None]
  - SPINAL OSTEOARTHRITIS [None]
  - ANXIETY [None]
  - PULMONARY GRANULOMA [None]
  - DIVERTICULUM [None]
  - DIZZINESS [None]
  - INGUINAL HERNIA [None]
  - ABSCESS JAW [None]
  - TOOTH ABSCESS [None]
  - OSTEOPENIA [None]
  - SYNCOPE [None]
  - HYPERTENSION [None]
